FAERS Safety Report 4709807-4 (Version None)
Quarter: 2005Q3

REPORT INFORMATION
  Report Type: 
  Country: None (occurrence: None)
  Receive Date: 20050708
  Receipt Date: 20050617
  Transmission Date: 20060218
  Serious: Yes (Life-Threatening, Hospitalization)
  Sender: FDA-Public Use
  Company Number: JP-MERCK-0506USA02927

PATIENT
  Age: 59 Year
  Sex: Female

DRUGS (9)
  1. RENIVACE [Concomitant]
     Indication: MYOCARDIAL INFARCTION
     Route: 048
     Dates: end: 20050528
  2. FOSAMAX [Suspect]
     Indication: OSTEOPOROSIS
     Route: 048
     Dates: end: 20050528
  3. ASPIRIN [Concomitant]
     Indication: ANGINA PECTORIS
     Route: 048
     Dates: end: 20050528
  4. ASPIRIN [Concomitant]
     Route: 048
     Dates: start: 20050606
  5. PANALDINE [Concomitant]
     Indication: MYOCARDIAL INFARCTION
     Route: 048
     Dates: end: 20050528
  6. PANALDINE [Concomitant]
     Route: 048
     Dates: start: 20050606
  7. RENIVACE [Concomitant]
     Route: 048
     Dates: start: 20050606
  8. ALFAROL [Concomitant]
     Indication: OSTEOPOROSIS
     Route: 048
     Dates: end: 20050528
  9. ALFAROL [Concomitant]
     Route: 048
     Dates: start: 20050606

REACTIONS (9)
  - BLOOD PRESSURE DECREASED [None]
  - CHEST PAIN [None]
  - HAEMATEMESIS [None]
  - MELAENA [None]
  - OESOPHAGEAL POLYP [None]
  - OESOPHAGITIS HAEMORRHAGIC [None]
  - PROCEDURAL COMPLICATION [None]
  - SHOCK HAEMORRHAGIC [None]
  - UPPER GASTROINTESTINAL HAEMORRHAGE [None]
